FAERS Safety Report 22369418 (Version 8)
Quarter: 2023Q4

REPORT INFORMATION
  Report Type: Report from Study
  Country: US (occurrence: US)
  Receive Date: 20230526
  Receipt Date: 20231018
  Transmission Date: 20240110
  Serious: Yes (Hospitalization, Disabling)
  Sender: FDA-Public Use
  Company Number: US-PFIZER INC-202300197388

PATIENT
  Age: 73 Year
  Sex: Female
  Weight: 49.3 kg

DRUGS (4)
  1. ELRANATAMAB [Suspect]
     Active Substance: ELRANATAMAB
     Indication: Plasma cell myeloma
     Dosage: 4 MG, ONCE
     Route: 058
     Dates: start: 20230406, end: 20230406
  2. ELRANATAMAB [Suspect]
     Active Substance: ELRANATAMAB
     Dosage: 20 MG, ONCE
     Route: 058
     Dates: start: 20230410, end: 20230410
  3. ELRANATAMAB [Suspect]
     Active Substance: ELRANATAMAB
     Dosage: 76 MG, WEEKLY
     Route: 058
     Dates: start: 20230414, end: 20230414
  4. ELRANATAMAB [Suspect]
     Active Substance: ELRANATAMAB
     Dosage: 76 MG, WEEKLY
     Route: 058
     Dates: start: 20230420, end: 20230420

REACTIONS (2)
  - Back pain [Recovered/Resolved]
  - Asthenia [Not Recovered/Not Resolved]

NARRATIVE: CASE EVENT DATE: 20230417
